FAERS Safety Report 6765646-4 (Version None)
Quarter: 2010Q2

REPORT INFORMATION
  Report Type: 
  Country: None (occurrence: None)
  Receive Date: 20100611
  Receipt Date: 20100601
  Transmission Date: 20101027
  Serious: Yes (Other)
  Sender: FDA-Public Use
  Company Number: US-TEVA-199565USA

PATIENT
  Age: 61 Year
  Sex: Female

DRUGS (4)
  1. ALENDRONATE SODIUM [Suspect]
     Indication: OSTEOPOROSIS
     Dates: start: 20090328
  2. LEVOTHYROXINE SODIUM [Concomitant]
     Dates: start: 20081021
  3. VICODIN [Concomitant]
     Dosage: 1-2 TABS EVERY 6HRS AS NEEDED
     Route: 048
     Dates: start: 20080321
  4. NAPROXEN SODIUM [Concomitant]
     Dosage: TAKE OR APPLY AS NEEDED
     Dates: start: 20070522

REACTIONS (14)
  - ABDOMINAL PAIN [None]
  - ARTHRALGIA [None]
  - ARTHRITIS [None]
  - ASTHENIA [None]
  - BONE PAIN [None]
  - DEPRESSION [None]
  - FATIGUE [None]
  - GAIT DISTURBANCE [None]
  - GASTROOESOPHAGEAL REFLUX DISEASE [None]
  - HEADACHE [None]
  - MOVEMENT DISORDER [None]
  - MYALGIA [None]
  - RASH [None]
  - SUICIDAL IDEATION [None]
